FAERS Safety Report 13275939 (Version 1)
Quarter: 2017Q1

REPORT INFORMATION
  Report Type: Report from Study
  Country: None (occurrence: GB)
  Receive Date: 20170228
  Receipt Date: 20170228
  Transmission Date: 20170428
  Serious: Yes (Hospitalization)
  Sender: FDA-Public Use
  Company Number: GB-ABBVIE-17P-167-1883780-00

PATIENT
  Age: 83 Year
  Sex: Male
  Weight: 78.5 kg

DRUGS (11)
  1. LOSARTAN. [Concomitant]
     Active Substance: LOSARTAN
     Indication: PRODUCT USED FOR UNKNOWN INDICATION
     Dates: start: 20140714
  2. TRAMADOL. [Concomitant]
     Active Substance: TRAMADOL
     Indication: PRODUCT USED FOR UNKNOWN INDICATION
     Dates: start: 20140917, end: 20140918
  3. TAMSULOSIN HCL [Concomitant]
     Active Substance: TAMSULOSIN
     Indication: PRODUCT USED FOR UNKNOWN INDICATION
     Dates: start: 20140714, end: 20140916
  4. FINASTERIDE. [Concomitant]
     Active Substance: FINASTERIDE
     Indication: PRODUCT USED FOR UNKNOWN INDICATION
     Dates: start: 20140916
  5. DALTEPARIN [Concomitant]
     Active Substance: DALTEPARIN
     Dates: start: 20150210, end: 20150211
  6. PARACETAMOL [Concomitant]
     Active Substance: ACETAMINOPHEN
     Indication: PRODUCT USED FOR UNKNOWN INDICATION
     Dates: start: 20150210, end: 20150211
  7. HUMIRA [Suspect]
     Active Substance: ADALIMUMAB
     Indication: PSORIASIS
     Route: 058
     Dates: start: 20120120
  8. AMLODIPINE [Concomitant]
     Active Substance: AMLODIPINE BESYLATE
     Indication: PRODUCT USED FOR UNKNOWN INDICATION
     Dates: start: 20090801, end: 20140714
  9. DALTEPARIN [Concomitant]
     Active Substance: DALTEPARIN
     Indication: PRODUCT USED FOR UNKNOWN INDICATION
     Dates: start: 20140916, end: 20140917
  10. LACTULOSE. [Concomitant]
     Active Substance: LACTULOSE
     Indication: PRODUCT USED FOR UNKNOWN INDICATION
     Dates: start: 20150211, end: 20150212
  11. ATORVASTATIN [Concomitant]
     Active Substance: ATORVASTATIN
     Indication: PRODUCT USED FOR UNKNOWN INDICATION
     Dates: start: 20140714

REACTIONS (5)
  - Atrioventricular block first degree [Recovered/Resolved with Sequelae]
  - Loss of consciousness [Recovered/Resolved with Sequelae]
  - Dizziness [Unknown]
  - Sensory disturbance [Recovered/Resolved with Sequelae]
  - Syncope [Recovered/Resolved with Sequelae]

NARRATIVE: CASE EVENT DATE: 20170101
